FAERS Safety Report 8212271-4 (Version None)
Quarter: 2012Q1

REPORT INFORMATION
  Report Type: 
  Country: None (occurrence: None)
  Receive Date: 20120315
  Receipt Date: 20120313
  Transmission Date: 20120608
  Serious: Yes (Other)
  Sender: FDA-Public Use
  Company Number: CA-ROCHE-1048883

PATIENT
  Sex: Male

DRUGS (3)
  1. TAMIFLU [Suspect]
     Indication: INFLUENZA
     Route: 048
     Dates: start: 20120309, end: 20120311
  2. DIGOXIN [Concomitant]
  3. BISOPROLOL FUMARATE [Concomitant]

REACTIONS (1)
  - CONJUNCTIVITIS [None]
